FAERS Safety Report 6574298-8 (Version None)
Quarter: 2010Q1

REPORT INFORMATION
  Report Type: 
  Country: None (occurrence: None)
  Receive Date: 20100201
  Receipt Date: 20100121
  Transmission Date: 20100710
  Serious: Yes (Other)
  Sender: FDA-Public Use
  Company Number: CIP09003188

PATIENT
  Age: 30 Year

DRUGS (18)
  1. FURADANTIN [Suspect]
     Dosage: ORAL
     Route: 048
     Dates: start: 20091001
  2. GENTALINE (GENTALINE SULFATE) [Suspect]
     Indication: URINARY TRACT INFECTION PSEUDOMONAL
     Dosage: 80 MG, DAILY
     Dates: start: 20090828, end: 20090901
  3. HOMEOPATHIC PREPARATION (COLIBACILLUM) [Concomitant]
  4. CRANBERRY (VACCINIUM MACROCARPON) [Concomitant]
  5. MULTI-VITAMINS [Concomitant]
  6. PULSATILLA (PULSATILLA PRATENSIS) [Concomitant]
  7. PHOSPHORUS (PHOSPHORUS) [Concomitant]
  8. OPIUM DERIVATIVES AND EXPECTORANTS [Concomitant]
  9. HAMAMELIS (HAMAMELIS VIRGINIANA LIQUID EXTRACT) [Concomitant]
  10. PYROGENIUM (HOMEOPATICS NOS) [Concomitant]
  11. PLACENTA (PLACENTA) [Concomitant]
  12. ARNICA (ARNICA MONTANA) [Concomitant]
  13. MERCURIUS SOLUBILIS OLIGOPLEX (MERCURIC NITRATE, SODIUM NITRATE) [Concomitant]
  14. IRON (IRON) [Concomitant]
  15. CALCAREA PHOSPHORICA (CALCIUM PHOSPHATE) [Concomitant]
  16. COLIBACTERIN (ESCHERICHIA COLI) [Concomitant]
  17. THUJA OLIGOPLEX (HOMEOPATICS NOS) [Concomitant]
  18. IPECAC (CEPHAELIS SPP. SYRUP) [Concomitant]

REACTIONS (3)
  - ABORTION INDUCED [None]
  - DRUG EXPOSURE DURING PREGNANCY [None]
  - OLIGOHYDRAMNIOS [None]
